FAERS Safety Report 4528936-1 (Version None)
Quarter: 2004Q4

REPORT INFORMATION
  Report Type: 
  Country: None (occurrence: None)
  Receive Date: 20041214
  Receipt Date: 20041129
  Transmission Date: 20050328
  Serious: Yes (Hospitalization, Other)
  Sender: FDA-Public Use
  Company Number: 15553

PATIENT
  Age: 78 Year
  Sex: Female
  Weight: 58.514 kg

DRUGS (1)
  1. LEUCOVORIN CALCIUM [Suspect]
     Indication: COLON CANCER
     Dosage: 320 MG OTHER
     Route: 050
     Dates: start: 20040818

REACTIONS (8)
  - ABDOMINAL PAIN [None]
  - DYSPEPSIA [None]
  - DYSPNOEA EXERTIONAL [None]
  - MALAISE [None]
  - MOUTH ULCERATION [None]
  - MUCOSAL INFLAMMATION [None]
  - NEUTROPENIA [None]
  - PYREXIA [None]
